FAERS Safety Report 7133268-1 (Version None)
Quarter: 2010Q4

REPORT INFORMATION
  Report Type: 
  Country: None (occurrence: None)
  Receive Date: 20101202
  Receipt Date: 20101118
  Transmission Date: 20110411
  Serious: Yes (Other)
  Sender: FDA-Public Use
  Company Number: US-CEPHALON-2010006041

PATIENT
  Sex: Female

DRUGS (2)
  1. NUVIGIL [Suspect]
     Route: 048
     Dates: start: 20101028, end: 20101028
  2. NUVIGIL [Suspect]
     Route: 048
     Dates: start: 20101029, end: 20101029

REACTIONS (3)
  - BLOOD PRESSURE INCREASED [None]
  - FEELING ABNORMAL [None]
  - TREMOR [None]
